FAERS Safety Report 4664610-9 (Version None)
Quarter: 2005Q2

REPORT INFORMATION
  Report Type: 
  Country: None (occurrence: None)
  Receive Date: 20050518
  Receipt Date: 20050210
  Transmission Date: 20051028
  Serious: Yes (Other)
  Sender: FDA-Public Use
  Company Number: AU-GLAXOSMITHKLINE-B0381415A

PATIENT
  Sex: Female

DRUGS (2)
  1. ZYBAN [Suspect]
     Route: 048
  2. MOGADON [Concomitant]
     Route: 065

REACTIONS (3)
  - OVERDOSE [None]
  - SUICIDAL IDEATION [None]
  - SUICIDE ATTEMPT [None]
